FAERS Safety Report 20215802 (Version 1)
Quarter: 2021Q4

REPORT INFORMATION
  Report Type: Spontaneous
  Country: CA (occurrence: CA)
  Receive Date: 20211222
  Receipt Date: 20211222
  Transmission Date: 20220304
  Serious: Yes (Hospitalization, Other)
  Sender: FDA-Public Use
  Company Number: CA-ABBVIE-21K-028-4206400-00

PATIENT
  Sex: Female

DRUGS (3)
  1. VALPROIC ACID [Suspect]
     Active Substance: VALPROIC ACID
     Indication: Bipolar disorder
     Route: 048
  2. ZOLPIDEM [Concomitant]
     Active Substance: ZOLPIDEM TARTRATE
     Indication: Product used for unknown indication
  3. TYLENOL COLD + SINUS [Concomitant]
     Indication: Product used for unknown indication

REACTIONS (8)
  - Mental impairment [Unknown]
  - Depressed mood [Unknown]
  - Feeling abnormal [Unknown]
  - Feeling drunk [Unknown]
  - Muscular weakness [Unknown]
  - Back pain [Unknown]
  - Neck pain [Unknown]
  - Vertigo [Unknown]
